FAERS Safety Report 18340108 (Version 2)
Quarter: 2020Q4

REPORT INFORMATION
  Report Type: Spontaneous
  Country: GR (occurrence: GR)
  Receive Date: 20201002
  Receipt Date: 20201015
  Transmission Date: 20210113
  Serious: Yes (Hospitalization, Other)
  Sender: FDA-Public Use
  Company Number: GR-BAUSCH-BL-2020-027826

PATIENT
  Age: 19 Year
  Sex: Female

DRUGS (19)
  1. COLISTIN [Suspect]
     Active Substance: COLISTIN
     Indication: ANTIBIOTIC THERAPY
  2. MICAFUNGIN. [Suspect]
     Active Substance: MICAFUNGIN SODIUM
     Indication: EPSTEIN-BARR VIRUS INFECTION
  3. COLISTIN [Suspect]
     Active Substance: COLISTIN
     Indication: EPSTEIN-BARR VIRUS INFECTION
     Route: 065
  4. MICAFUNGIN. [Suspect]
     Active Substance: MICAFUNGIN SODIUM
     Indication: ANTIBIOTIC THERAPY
     Route: 065
  5. PROPOFOL. [Concomitant]
     Active Substance: PROPOFOL
     Indication: BLOOD TRIGLYCERIDES INCREASED
  6. NOREPINEFRIN [Concomitant]
     Indication: PULMONARY FUNCTION TEST DECREASED
     Dosage: UNK (HIGH DOSE)
  7. PREDNISOLONE. [Suspect]
     Active Substance: PREDNISOLONE
     Indication: HAEMOPHAGOCYTIC LYMPHOHISTIOCYTOSIS
     Route: 042
  8. PREDNISOLONE. [Suspect]
     Active Substance: PREDNISOLONE
     Indication: EPSTEIN-BARR VIRUS INFECTION
  9. DAPTOMYCIN. [Suspect]
     Active Substance: DAPTOMYCIN
     Indication: EPSTEIN-BARR VIRUS INFECTION
     Route: 065
  10. DAPTOMYCIN. [Suspect]
     Active Substance: DAPTOMYCIN
     Indication: ANTIBIOTIC THERAPY
  11. MEROPENEM. [Suspect]
     Active Substance: MEROPENEM
     Indication: EPSTEIN-BARR VIRUS INFECTION
  12. LEVOFLOXACIN. [Concomitant]
     Active Substance: LEVOFLOXACIN
     Indication: PYREXIA
     Route: 042
  13. MEROPENEM. [Suspect]
     Active Substance: MEROPENEM
     Indication: ANTIBIOTIC THERAPY
     Route: 065
  14. DOXYCYCLINE. [Concomitant]
     Active Substance: DOXYCYCLINE
     Indication: PYREXIA
     Route: 048
  15. ACYCLOVIR. [Suspect]
     Active Substance: ACYCLOVIR
     Indication: EPSTEIN-BARR VIRUS INFECTION
     Route: 065
  16. TIGECYCLINE. [Suspect]
     Active Substance: TIGECYCLINE
     Indication: EPSTEIN-BARR VIRUS INFECTION
     Route: 065
  17. TIGECYCLINE. [Suspect]
     Active Substance: TIGECYCLINE
     Indication: ANTIBIOTIC THERAPY
  18. LEVOFLOXACIN. [Concomitant]
     Active Substance: LEVOFLOXACIN
     Indication: SPLENOMEGALY
  19. DOXYCYCLINE. [Concomitant]
     Active Substance: DOXYCYCLINE
     Indication: SPLENOMEGALY

REACTIONS (5)
  - Phagocytosis [Recovering/Resolving]
  - Rash maculo-papular [Recovering/Resolving]
  - Marrow hyperplasia [Recovering/Resolving]
  - Haemophagocytic lymphohistiocytosis [Recovering/Resolving]
  - Drug ineffective [Unknown]
